FAERS Safety Report 7947927-1 (Version None)
Quarter: 2011Q4

REPORT INFORMATION
  Report Type: 
  Country: None (occurrence: None)
  Receive Date: 20111121
  Receipt Date: 20111110
  Transmission Date: 20120403
  Serious: Yes (Other)
  Sender: FDA-Public Use
  Company Number: US-1188966

PATIENT
  Age: 82 Year
  Sex: Female

DRUGS (3)
  1. PREDNISOLONE ACETATE [Suspect]
     Indication: POSTOPERATIVE CARE
     Dosage: (TID OPHTHALMIC)
     Route: 047
  2. BROMDAY [Suspect]
     Indication: POSTOPERATIVE CARE
     Dosage: QD OPHTHALMIC
     Route: 047
  3. VIGAMOX [Suspect]
     Indication: POSTOPERATIVE CARE
     Dosage: (TID OPHTHALMIC)

REACTIONS (4)
  - VISUAL ACUITY REDUCED [None]
  - ENDOPHTHALMITIS [None]
  - HYPOTONIA [None]
  - EYE PAIN [None]
